FAERS Safety Report 19143747 (Version 3)
Quarter: 2022Q1

REPORT INFORMATION
  Report Type: Spontaneous
  Country: US (occurrence: US)
  Receive Date: 20210416
  Receipt Date: 20220205
  Transmission Date: 20220423
  Serious: No
  Sender: FDA-Public Use
  Company Number: US-JNJFOC-20210412177

PATIENT
  Sex: Female

DRUGS (1)
  1. WOMENS ROGAINE UNSCENTED [Suspect]
     Active Substance: MINOXIDIL
     Indication: Alopecia
     Dosage: ONCE A DAY FOLLOW THE INSTRUCTIONS
     Route: 061
     Dates: start: 2017

REACTIONS (2)
  - Alopecia [Recovered/Resolved]
  - Product formulation issue [Unknown]
